FAERS Safety Report 4463729-5 (Version None)
Quarter: 2004Q3

REPORT INFORMATION
  Report Type: 
  Country: None (occurrence: None)
  Receive Date: 20040929
  Receipt Date: 20040913
  Transmission Date: 20050211
  Serious: Yes (Hospitalization)
  Sender: FDA-Public Use
  Company Number: B0311816A

PATIENT
  Age: 72 Year
  Sex: Male
  Weight: 37.9207 kg

DRUGS (14)
  1. PAXIL [Suspect]
     Indication: DEPRESSION
     Dosage: SEE DOSAGE TEXT  ORAL
     Route: 048
     Dates: start: 20020220, end: 20020320
  2. CLOMIPRAMINE HCL [Concomitant]
  3. TIAPRIDE HYDROCHLORIDE [Concomitant]
  4. MIANSERIN HYDROCHLORODE [Concomitant]
  5. FAMOTIDINE [Concomitant]
  6. SULPIRIDE [Concomitant]
  7. HYDROXYZINE PAMOATE [Concomitant]
  8. TAMSULOSIN HCL [Concomitant]
  9. HALOPERIDOL [Concomitant]
  10. RACOL [Concomitant]
  11. PHYSIOSOL [Concomitant]
  12. D-SORBITOL + ELECTROLYTES [Concomitant]
  13. HARMONIC-F [Concomitant]
  14. HALOPERIDOL [Concomitant]

REACTIONS (7)
  - ANOREXIA [None]
  - DECREASED ACTIVITY [None]
  - DELIRIUM [None]
  - DISORIENTATION [None]
  - INAPPROPRIATE ANTIDIURETIC HORMONE SECRETION [None]
  - MALAISE [None]
  - MARKEDLY REDUCED DIETARY INTAKE [None]
